FAERS Safety Report 23149170 (Version 1)
Quarter: 2023Q4

REPORT INFORMATION
  Report Type: Spontaneous
  Country: US (occurrence: US)
  Receive Date: 20231106
  Receipt Date: 20231106
  Transmission Date: 20240109
  Serious: No
  Sender: FDA-Public Use
  Company Number: US-PARATEK PHARMACEUTICALS, INC.-2023PTK00013

PATIENT

DRUGS (2)
  1. NUZYRA [Suspect]
     Active Substance: OMADACYCLINE
     Indication: Mycobacterial infection
     Dosage: UNK
  2. NUZYRA [Suspect]
     Active Substance: OMADACYCLINE
     Dosage: UNK

REACTIONS (2)
  - Vision blurred [Unknown]
  - Off label use [Unknown]
